FAERS Safety Report 26096042 (Version 1)
Quarter: 2025Q4

REPORT INFORMATION
  Report Type: Report from Study
  Country: PK (occurrence: PK)
  Receive Date: 20251127
  Receipt Date: 20251127
  Transmission Date: 20260117
  Serious: Yes (Death, Hospitalization, Other)
  Sender: ROCHE
  Company Number: PK-ROCHE-10000444940

PATIENT
  Age: 39 Year
  Sex: Female

DRUGS (1)
  1. AVASTIN [Suspect]
     Active Substance: BEVACIZUMAB
     Indication: Ovarian cancer
     Route: 042
     Dates: start: 20250927

REACTIONS (3)
  - Hypotension [Fatal]
  - Metastases to gastrointestinal tract [Unknown]
  - Pain [Unknown]

NARRATIVE: CASE EVENT DATE: 20251120
